FAERS Safety Report 4413190-1 (Version None)
Quarter: 2004Q3

REPORT INFORMATION
  Report Type: 
  Country: None (occurrence: None)
  Receive Date: 20040802
  Receipt Date: 20040723
  Transmission Date: 20050211
  Serious: Yes (Hospitalization)
  Sender: FDA-Public Use
  Company Number: FR-GLAXOSMITHKLINE-B0340937A

PATIENT
  Age: 51 Year
  Sex: Female
  Weight: 56 kg

DRUGS (5)
  1. ZOPHREN [Suspect]
     Indication: NAUSEA
     Route: 065
  2. BECILAN [Suspect]
     Dosage: 250MG THREE TIMES PER DAY
     Route: 048
     Dates: start: 20040421
  3. NEURONTIN [Suspect]
     Indication: NEUROPATHY PERIPHERAL
     Route: 048
     Dates: start: 20040421, end: 20040614
  4. TAXOTERE [Suspect]
     Dosage: 110MG MONTHLY
     Route: 042
     Dates: start: 20040419
  5. CAELYX [Suspect]
     Dosage: 70MG MONTHLY
     Route: 042
     Dates: start: 20040419

REACTIONS (9)
  - ACUTE GENERALISED EXANTHEMATOUS PUSTULOSIS [None]
  - APHTHOUS STOMATITIS [None]
  - DERMATITIS BULLOUS [None]
  - ERYTHEMA [None]
  - INFLAMMATION [None]
  - OEDEMA PERIPHERAL [None]
  - PAIN IN EXTREMITY [None]
  - PYREXIA [None]
  - RASH ERYTHEMATOUS [None]
